FAERS Safety Report 25167113 (Version 1)
Quarter: 2025Q2

REPORT INFORMATION
  Report Type: Spontaneous
  Country: US (occurrence: US)
  Receive Date: 20250407
  Receipt Date: 20250407
  Transmission Date: 20250716
  Serious: No
  Sender: MYLAN
  Company Number: US-MYLANLABS-2025M1026233

PATIENT
  Sex: Female
  Weight: 15.19 kg

DRUGS (1)
  1. CYSTAGON [Suspect]
     Active Substance: CYSTEAMINE BITARTRATE
     Indication: Cystinosis
     Dosage: 250 MILLIGRAM, Q6H (EVERY 6 HOURS)
     Dates: start: 202304

REACTIONS (2)
  - Weight abnormal [Unknown]
  - Headache [Unknown]
